FAERS Safety Report 9564171 (Version 4)
Quarter: 2014Q1

REPORT INFORMATION
  Report Type: Spontaneous
  Country: DE (occurrence: DE)
  Receive Date: 20130930
  Receipt Date: 20140205
  Transmission Date: 20141002
  Serious: Yes (Hospitalization)
  Sender: FDA-Public Use
  Company Number: DE-ROCHE-1282344

PATIENT
  Age: 33 Year
  Sex: Male
  Weight: 75 kg

DRUGS (10)
  1. AVASTIN [Suspect]
     Indication: GLIOBLASTOMA
     Dosage: LAST DOSE WAS ON 24/SEP/2013
     Route: 042
     Dates: start: 20110523
  2. AVASTIN [Suspect]
     Route: 065
     Dates: start: 20111021, end: 20130924
  3. AVASTIN [Suspect]
     Route: 065
     Dates: start: 20131007
  4. AVASTIN [Suspect]
     Route: 065
     Dates: start: 20131106
  5. LEVETIRACETAM [Concomitant]
     Indication: EPILEPSY
     Dosage: FREQUENCY 1-0-1
     Route: 048
     Dates: start: 2010
  6. TEMOZOLOMID [Concomitant]
     Indication: GLIOBLASTOMA MULTIFORME
     Dosage: FREQUENCY GIVEN AS DAYS
     Route: 048
  7. LAMOTRIGIN [Concomitant]
     Indication: EPILEPSY
     Dosage: FREQUENCY 1-0-0
     Route: 048
     Dates: start: 2010
  8. CELECOXIB [Concomitant]
     Indication: GLIOBLASTOMA MULTIFORME
     Route: 048
     Dates: start: 2011
  9. CELECOXIB [Concomitant]
     Route: 065
     Dates: start: 20110523
  10. PIOGLITAZONE [Concomitant]
     Route: 065
     Dates: start: 20110523

REACTIONS (2)
  - Osteonecrosis [Unknown]
  - Off label use [Unknown]
